FAERS Safety Report 24985100 (Version 1)
Quarter: 2025Q1

REPORT INFORMATION
  Report Type: Spontaneous
  Country: PT (occurrence: PT)
  Receive Date: 20250219
  Receipt Date: 20250219
  Transmission Date: 20250409
  Serious: Yes (Other)
  Sender: AUROBINDO
  Company Number: PT-RBHC-20-25-PRT-RB-0000815

PATIENT
  Age: 2 Year
  Sex: Male

DRUGS (1)
  1. IBUPROFEN [Suspect]
     Active Substance: IBUPROFEN
     Indication: Arthralgia
     Route: 065

REACTIONS (2)
  - Langerhans^ cell histiocytosis [Not Recovered/Not Resolved]
  - Drug ineffective [Not Recovered/Not Resolved]
